FAERS Safety Report 5742197-7 (Version None)
Quarter: 2008Q2

REPORT INFORMATION
  Report Type: 
  Country: None (occurrence: None)
  Receive Date: 20080514
  Receipt Date: 20080514
  Transmission Date: 20081010
  Serious: Yes (Life-Threatening, Disabling, Other)
  Sender: FDA-Public Use
  Company Number: None

PATIENT
  Age: 86 Year
  Sex: Male
  Weight: 76.6579 kg

DRUGS (1)
  1. DIGITEK   125 MCG TABLET   ACTAVIS TOTOWA LLC [Suspect]
     Indication: CARDIAC FAILURE CONGESTIVE
     Dosage: 1 TABLET DAILEY PO
     Route: 048
     Dates: start: 20080203, end: 20080502

REACTIONS (13)
  - AGEUSIA [None]
  - ANOREXIA [None]
  - ASTHENIA [None]
  - CONTUSION [None]
  - DIARRHOEA [None]
  - DIZZINESS [None]
  - FALL [None]
  - HALLUCINATION [None]
  - HYPOTENSION [None]
  - NAUSEA [None]
  - URINE OUTPUT DECREASED [None]
  - VOMITING [None]
  - WEIGHT DECREASED [None]
